FAERS Safety Report 14137585 (Version 1)
Quarter: 2017Q4

REPORT INFORMATION
  Report Type: Spontaneous
  Country: US (occurrence: US)
  Receive Date: 20171027
  Receipt Date: 20171027
  Transmission Date: 20180321
  Serious: Yes (Hospitalization, Other)
  Sender: FDA-Public Use
  Company Number: US-NOVOPROD-569108

PATIENT
  Sex: Male

DRUGS (1)
  1. NOVOLOG [Suspect]
     Active Substance: INSULIN ASPART
     Indication: PRODUCT USED FOR UNKNOWN INDICATION
     Dosage: UNK
     Route: 058

REACTIONS (7)
  - Blood glucose increased [Unknown]
  - Temporomandibular joint syndrome [Unknown]
  - Osteomyelitis [Unknown]
  - Tooth loss [Unknown]
  - Intentional dose omission [Unknown]
  - Systemic candida [Unknown]
  - Paraesthesia [Unknown]

NARRATIVE: CASE EVENT DATE: 2006
